FAERS Safety Report 10022697 (Version 1)
Quarter: 2014Q1

REPORT INFORMATION
  Report Type: Spontaneous
  Country: US (occurrence: US)
  Receive Date: 20140319
  Receipt Date: 20140319
  Transmission Date: 20141002
  Serious: Yes (Other)
  Sender: FDA-Public Use
  Company Number: US-PFIZER INC-2014073994

PATIENT
  Sex: 0

DRUGS (3)
  1. ERYTHROMYCIN [Suspect]
     Dosage: UNK
  2. METHYLPREDNISOLONE [Suspect]
     Dosage: UNK
  3. PENICILLIN G BENZATHINE/PENICILLIN G PROCAINE [Suspect]

REACTIONS (2)
  - Stevens-Johnson syndrome [Unknown]
  - Drug hypersensitivity [Unknown]
